FAERS Safety Report 10419059 (Version 1)
Quarter: 2014Q2

REPORT INFORMATION
  Report Type: Spontaneous
  Country: US (occurrence: None)
  Receive Date: 20140625
  Receipt Date: 20140625
  Transmission Date: 20141212
  Serious: No
  Sender: FDA-Public Use
  Company Number: A-US2014-95162

PATIENT
  Age: 58 Year
  Sex: Female

DRUGS (1)
  1. OPSUMIT (MACITENTAN) [Suspect]
     Indication: PRODUCT USED FOR UNKNOWN INDICATION
     Route: 048

REACTIONS (9)
  - Respiratory tract congestion [None]
  - Micturition urgency [None]
  - Pain in extremity [None]
  - Fluid retention [None]
  - Palpitations [None]
  - Headache [None]
  - Dyspnoea [None]
  - Chest pain [None]
  - Secretion discharge [None]
